FAERS Safety Report 9165334 (Version 3)
Quarter: 2013Q2

REPORT INFORMATION
  Report Type: Report from Study
  Country: JP (occurrence: JP)
  Receive Date: 20130315
  Receipt Date: 20130416
  Transmission Date: 20140414
  Serious: Yes (Other)
  Sender: FDA-Public Use
  Company Number: JP-ASTELLAS-2013JP003828

PATIENT
  Age: 84 Year
  Sex: Female
  Weight: 41.5 kg

DRUGS (8)
  1. SOLIFENACIN [Suspect]
     Indication: HYPERTONIC BLADDER
     Dosage: 10 MG, UNKNOWN/D
     Route: 048
     Dates: start: 20130221, end: 20130301
  2. SOLIFENACIN [Suspect]
     Dosage: 5 MG, UID/QD
     Route: 048
     Dates: start: 20120920, end: 20130221
  3. MIRABEGRON [Suspect]
     Indication: HYPERTONIC BLADDER
     Dosage: 25 MG, UID/QD
     Route: 048
     Dates: start: 20121030, end: 20130221
  4. BLOPRESS [Concomitant]
     Indication: HYPERTENSION
     Dosage: 4 MG, UNKNOWN/D
     Route: 048
     Dates: start: 20050524
  5. MOHRUS [Concomitant]
     Indication: OSTEOARTHRITIS
     Dosage: 40 MG, PRN
     Route: 062
  6. EPADEL-S [Concomitant]
     Indication: CAROTID ARTERIOSCLEROSIS
     Dosage: 1800 MG, UNKNOWN/D
     Route: 048
     Dates: start: 20111101
  7. ACTONEL [Concomitant]
     Indication: OSTEOPOROSIS
     Dosage: 17.5 MG, WEEKLY
     Route: 048
     Dates: start: 20100409
  8. PL GRAN. [Concomitant]
     Indication: NASOPHARYNGITIS
     Dosage: 4 G, UNKNOWN/D
     Route: 048
     Dates: start: 20121029, end: 20121102

REACTIONS (1)
  - Electrocardiogram ST segment depression [Recovering/Resolving]
